FAERS Safety Report 23749225 (Version 1)
Quarter: 2024Q2

REPORT INFORMATION
  Report Type: Spontaneous
  Country: BE (occurrence: BE)
  Receive Date: 20240416
  Receipt Date: 20240416
  Transmission Date: 20240716
  Serious: Yes (Other)
  Sender: FDA-Public Use
  Company Number: BE-002147023-NVSC2024BE078498

PATIENT
  Age: 57 Year
  Sex: Female

DRUGS (3)
  1. LETROZOLE [Suspect]
     Active Substance: LETROZOLE
     Indication: Breast cancer
     Dosage: UNK
     Route: 065
  2. PALBOCICLIB [Concomitant]
     Active Substance: PALBOCICLIB
     Indication: Breast cancer
     Dosage: UNK
     Route: 065
  3. GOSERELIN [Concomitant]
     Active Substance: GOSERELIN
     Indication: Breast cancer
     Dosage: UNK
     Route: 065

REACTIONS (6)
  - Metastases to pleura [Unknown]
  - Hepatitis [Unknown]
  - Metastases to bone [Unknown]
  - Subdiaphragmatic abscess [Unknown]
  - Metastases to liver [Unknown]
  - Breast neoplasm [Unknown]

NARRATIVE: CASE EVENT DATE: 20200601
